FAERS Safety Report 9444056 (Version 1)
Quarter: 2013Q3

REPORT INFORMATION
  Report Type: Spontaneous
  Country: US (occurrence: None)
  Receive Date: 20130806
  Receipt Date: 20130806
  Transmission Date: 20140515
  Serious: Yes (Hospitalization)
  Sender: FDA-Public Use
  Company Number: None

PATIENT
  Age: 22 Year
  Sex: Female

DRUGS (1)
  1. IMMUNE GLOBULIN [Suspect]
     Dosage: 90G QD INTRAVENOUS
     Route: 042
     Dates: start: 20120530, end: 20120601

REACTIONS (1)
  - Haemolytic anaemia [None]
